FAERS Safety Report 8690474 (Version 2)
Quarter: 2013Q1

REPORT INFORMATION
  Report Type: Spontaneous
  Country: US (occurrence: US)
  Receive Date: 20120727
  Receipt Date: 20130107
  Transmission Date: 20140127
  Serious: No
  Sender: FDA-Public Use
  Company Number: US-ASTRAZENECA-2012SE21870

PATIENT
  Age: 57 Year
  Sex: Male

DRUGS (2)
  1. SEROQUEL [Suspect]
     Route: 048
  2. SEROQUEL [Suspect]
     Route: 048

REACTIONS (7)
  - Malaise [Unknown]
  - Mania [Unknown]
  - Insomnia [Unknown]
  - Hostility [Unknown]
  - Drug withdrawal syndrome [Unknown]
  - Off label use [Unknown]
  - Intentional drug misuse [Unknown]
